FAERS Safety Report 6338365-6 (Version None)
Quarter: 2009Q3

REPORT INFORMATION
  Report Type: 
  Country: None (occurrence: None)
  Receive Date: 20090902
  Receipt Date: 20090821
  Transmission Date: 20100115
  Serious: Yes (Other)
  Sender: FDA-Public Use
  Company Number: GB-GILEAD-E2B_00000400

PATIENT
  Age: 66 Year
  Sex: Female
  Weight: 60 kg

DRUGS (12)
  1. AMBRISENTAN [Suspect]
     Indication: PULMONARY HYPERTENSION
     Route: 048
     Dates: start: 20090309, end: 20090626
  2. WARFARIN SODIUM [Concomitant]
  3. SPIRONOLACTONE [Concomitant]
     Dosage: 50MG PER DAY
  4. LEVOTHYROXINE SODIUM [Concomitant]
     Dosage: 150MCG PER DAY
  5. CLONAZEPAM [Concomitant]
     Dosage: 1MG PER DAY
  6. GABAPENTIN [Concomitant]
     Dosage: 900MG PER DAY
  7. CALCICHEW D3 [Concomitant]
  8. LANSOPRAZOLE [Concomitant]
     Dosage: 30MG PER DAY
  9. ALENDRONATE SODIUM [Concomitant]
  10. SILDENAFIL CITRATE [Concomitant]
     Dosage: 150MG PER DAY
  11. ILOPROST [Concomitant]
     Route: 042
     Dates: start: 20090401
  12. TREPROSTINIL [Concomitant]
     Route: 055

REACTIONS (1)
  - ANAEMIA [None]
